FAERS Safety Report 10801960 (Version 2)
Quarter: 2015Q1

REPORT INFORMATION
  Report Type: Spontaneous
  Country: ES (occurrence: ES)
  Receive Date: 20150217
  Receipt Date: 20150220
  Transmission Date: 20150721
  Serious: Yes (Other)
  Sender: FDA-Public Use
  Company Number: ES-CIPLA LTD.-2015ES01303

PATIENT

DRUGS (1)
  1. GEMCITABINE [Suspect]
     Active Substance: GEMCITABINE\GEMCITABINE HYDROCHLORIDE
     Indication: BLADDER CANCER
     Dosage: 2,000 MG IN 50 ML OF SALINE FOR 60 MINUTES ADMINISTERED WEEKLY FOR 6 WEEKS AND MONTHLY THEREAFTER
     Route: 043

REACTIONS (1)
  - Chemical cystitis [Unknown]
